FAERS Safety Report 17204166 (Version 1)
Quarter: 2019Q4

REPORT INFORMATION
  Report Type: Spontaneous
  Country: US (occurrence: US)
  Receive Date: 20191226
  Receipt Date: 20191226
  Transmission Date: 20200122
  Serious: No
  Sender: FDA-Public Use
  Company Number: US-SA-2019SA357594

PATIENT
  Age: 53 Year
  Sex: Female

DRUGS (5)
  1. OCREVUS [Concomitant]
     Active Substance: OCRELIZUMAB
  2. DULOXETINE HCL [Concomitant]
     Active Substance: DULOXETINE HYDROCHLORIDE
  3. PANTOPRAZOLE [Concomitant]
     Active Substance: PANTOPRAZOLE
  4. HYDROXYZINE [Concomitant]
     Active Substance: HYDROXYZINE HYDROCHLORIDE
  5. DUPIXENT [Suspect]
     Active Substance: DUPILUMAB
     Indication: DERMATITIS ATOPIC
     Dosage: 300 MG, QOW
     Route: 058
     Dates: start: 20191204

REACTIONS (2)
  - Product dose omission [Unknown]
  - Pruritus [Unknown]

NARRATIVE: CASE EVENT DATE: 20191220
